FAERS Safety Report 15434595 (Version 1)
Quarter: 2018Q3

REPORT INFORMATION
  Report Type: Spontaneous
  Country: IT (occurrence: IT)
  Receive Date: 20180927
  Receipt Date: 20180927
  Transmission Date: 20181010
  Serious: Yes (Hospitalization)
  Sender: FDA-Public Use
  Company Number: PHHY2018IT108542

PATIENT
  Age: 21 Year
  Sex: Female
  Weight: 45 kg

DRUGS (1)
  1. IBUPROFEN. [Suspect]
     Active Substance: IBUPROFEN
     Indication: MIGRAINE
     Dosage: 1800 MG, QD
     Route: 048
     Dates: start: 20180801, end: 20180808

REACTIONS (1)
  - Coombs positive haemolytic anaemia [Recovering/Resolving]

NARRATIVE: CASE EVENT DATE: 20180825
